FAERS Safety Report 7292250-4 (Version None)
Quarter: 2010Q4

REPORT INFORMATION
  Report Type: 
  Country: None (occurrence: None)
  Receive Date: 20101223
  Receipt Date: 20091123
  Transmission Date: 20110411
  Serious: Yes (Other)
  Sender: FDA-Public Use
  Company Number: 2009NI0224FU1

PATIENT
  Age: 76 Year
  Sex: Male
  Weight: 87.9978 kg

DRUGS (9)
  1. NITROLINGUAL PUMPSPRAY [Suspect]
     Indication: ANGINA PECTORIS
     Dosage: TWO SPRAYS, AS  NEEDED/1980'S
  2. GLIBERIDE [Concomitant]
  3. ZANTAC [Concomitant]
  4. ANTACID TAB [Concomitant]
  5. LISINOPRIL [Concomitant]
  6. HYDROCHLOROTHIAZIDE [Concomitant]
  7. OPROL [Concomitant]
  8. TECLAZINE [Concomitant]
  9. AMBIEN [Concomitant]

REACTIONS (1)
  - DRUG INEFFECTIVE [None]
